FAERS Safety Report 9519728 (Version 1)
Quarter: 2013Q1

REPORT INFORMATION
  Report Type: Spontaneous
  Country: US (occurrence: None)
  Receive Date: 20130305
  Receipt Date: 20130305
  Transmission Date: 20140127
  Serious: Yes (Hospitalization, Other)
  Sender: FDA-Public Use
  Company Number: 163-21880-12080749

PATIENT
  Age: 66 Year
  Sex: Male

DRUGS (17)
  1. REVLIMID [Suspect]
     Indication: PLASMA CELL MYELOMA
     Route: 048
     Dates: start: 20111213
  2. PLAVIX (CLOPIDOGREL SULFATE) [Concomitant]
  3. CENTRUM (CENTRUM) (TABLETS) [Concomitant]
  4. XALATAN (LATANOPROST) [Concomitant]
  5. ZOLPIDEM (ZOLPIDEM) [Concomitant]
  6. DEXAMETHASONE (DEXAMETHASONE) [Concomitant]
  7. LORAZEPAM (LORAZEPAM) [Concomitant]
  8. LISINOPRIL (LISINOPRIL) [Concomitant]
  9. PERCOCET (OXYCOCET) [Concomitant]
  10. METAMUCIL (METAMUCIL ^PROCTOR + GAMBLE^) [Concomitant]
  11. CHONDROITIN (CHONDROITIN) [Concomitant]
  12. CALCIUM +D (OS-CAL) [Concomitant]
  13. FISH OIL (FISH OIL) [Concomitant]
  14. GLUCOSAMINE (GLUCOSAMINE) [Concomitant]
  15. ZOMETA (ZOLEDRONIC ACID) [Concomitant]
  16. OXYCONTIN (OXYCODONE HYDROCHLORIDE) [Concomitant]
  17. MS CONTIN [Concomitant]

REACTIONS (1)
  - Myocardial infarction [None]
